FAERS Safety Report 4662603-9 (Version None)
Quarter: 2005Q2

REPORT INFORMATION
  Report Type: 
  Country: None (occurrence: None)
  Receive Date: 20050512
  Receipt Date: 20050426
  Transmission Date: 20051028
  Serious: Yes (Death)
  Sender: FDA-Public Use
  Company Number: US_0505116923

PATIENT
  Age: 70 Year
  Sex: Female

DRUGS (3)
  1. ZYPREXA [Suspect]
     Indication: MENTAL DISORDER
     Dosage: 10 MG/2 DAY
     Dates: start: 20050422, end: 20050426
  2. VALPROIC (VALPROIC ACID) [Concomitant]
  3. CLONAZEPAM [Concomitant]

REACTIONS (3)
  - BLOOD SODIUM DECREASED [None]
  - DISEASE RECURRENCE [None]
  - SOMNOLENCE [None]
